FAERS Safety Report 20834294 (Version 1)
Quarter: 2022Q2

REPORT INFORMATION
  Report Type: Report from Study
  Country: US (occurrence: US)
  Receive Date: 20220516
  Receipt Date: 20220516
  Transmission Date: 20220720
  Serious: Yes (Hospitalization)
  Sender: FDA-Public Use
  Company Number: US-BAYER-2022A041003

PATIENT
  Age: 59 Year
  Sex: Female
  Weight: 88.435 kg

DRUGS (4)
  1. ADEMPAS [Suspect]
     Active Substance: RIOCIGUAT
     Indication: Pulmonary arterial hypertension
     Dosage: UNK
     Dates: start: 20210413
  2. ADEMPAS [Suspect]
     Active Substance: RIOCIGUAT
     Indication: Pulmonary arterial hypertension
     Dosage: 2 MG, TID
     Route: 048
  3. REMODULIN [Concomitant]
     Active Substance: TREPROSTINIL
     Dosage: UNK
  4. OPSUMIT [Concomitant]
     Active Substance: MACITENTAN
     Dosage: UNK

REACTIONS (9)
  - Central venous catheterisation [Recovered/Resolved]
  - Hospitalisation [None]
  - Depression [None]
  - Diarrhoea [None]
  - Fatigue [None]
  - Pain in extremity [None]
  - Dyspnoea [Not Recovered/Not Resolved]
  - Flushing [None]
  - Nausea [None]

NARRATIVE: CASE EVENT DATE: 20220101
